FAERS Safety Report 5128691-0 (Version None)
Quarter: 2006Q4

REPORT INFORMATION
  Report Type: 
  Country: None (occurrence: None)
  Receive Date: 20061011
  Receipt Date: 20061003
  Transmission Date: 20070319
  Serious: Yes (Death, Other)
  Sender: FDA-Public Use
  Company Number: 163-20785-05120537

PATIENT
  Age: 65 Year
  Sex: Male

DRUGS (3)
  1. THALOMID [Suspect]
     Indication: ACUTE MYELOID LEUKAEMIA
     Dosage: 300 - 400MG, DAILY, ORAL
     Route: 048
     Dates: start: 20051018, end: 20051218
  2. THALOMID [Suspect]
     Indication: MYELODYSPLASTIC SYNDROME
     Dosage: 300 - 400MG, DAILY, ORAL
     Route: 048
     Dates: start: 20051018, end: 20051218
  3. COUMADIN [Concomitant]

REACTIONS (11)
  - ACUTE MYELOID LEUKAEMIA RECURRENT [None]
  - AGEUSIA [None]
  - ANOREXIA [None]
  - ANXIETY [None]
  - DEEP VEIN THROMBOSIS [None]
  - DYSPNOEA [None]
  - FATIGUE [None]
  - INFLUENZA LIKE ILLNESS [None]
  - NERVOUSNESS [None]
  - PNEUMONIA FUNGAL [None]
  - TREMOR [None]
